FAERS Safety Report 6222248-6 (Version None)
Quarter: 2009Q2

REPORT INFORMATION
  Report Type: 
  Country: None (occurrence: None)
  Receive Date: 20090611
  Receipt Date: 20090608
  Transmission Date: 20091009
  Serious: Yes (Hospitalization)
  Sender: FDA-Public Use
  Company Number: US-ASTRAZENECA-2009UW14712

PATIENT
  Sex: Female

DRUGS (4)
  1. PULMICORT FLEXHALER [Suspect]
     Dosage: USED FOR QUITE SOME TIME
     Route: 055
  2. FLONASE [Concomitant]
  3. ALBUTEROL [Concomitant]
  4. NEBULIZER TREATMENT [Concomitant]

REACTIONS (1)
  - GLOBAL AMNESIA [None]
